FAERS Safety Report 19905974 (Version 2)
Quarter: 2022Q1

REPORT INFORMATION
  Report Type: Report from Study
  Country: US (occurrence: US)
  Receive Date: 20211001
  Receipt Date: 20220217
  Transmission Date: 20220423
  Serious: No
  Sender: FDA-Public Use
  Company Number: US-KYOWAKIRIN-2021BKK016298

PATIENT

DRUGS (1)
  1. CRYSVITA [Suspect]
     Active Substance: BUROSUMAB-TWZA
     Indication: Hereditary hypophosphataemic rickets
     Dosage: ONCE EVERY 28 DAYS
     Route: 065
     Dates: end: 202112

REACTIONS (3)
  - Irritability [Not Recovered/Not Resolved]
  - Skin reaction [Not Recovered/Not Resolved]
  - Injection site reaction [Not Recovered/Not Resolved]
